FAERS Safety Report 6446515-6 (Version None)
Quarter: 2009Q4

REPORT INFORMATION
  Report Type: 
  Country: None (occurrence: None)
  Receive Date: 20091116
  Receipt Date: 20091026
  Transmission Date: 20100525
  Serious: No
  Sender: FDA-Public Use
  Company Number: 2009110020

PATIENT
  Age: 83 Year
  Sex: Male

DRUGS (2)
  1. ONSOLIS [Suspect]
     Dosage: BU
     Route: 002
  2. HYDROCODONE (HYDROCODONE) [Concomitant]

REACTIONS (2)
  - INTERCEPTED DRUG DISPENSING ERROR [None]
  - NO ADVERSE EVENT [None]
